FAERS Safety Report 24603435 (Version 4)
Quarter: 2025Q4

REPORT INFORMATION
  Report Type: Spontaneous
  Country: EU (occurrence: EU)
  Receive Date: 20241111
  Receipt Date: 20251010
  Transmission Date: 20260117
  Serious: Yes (Death, Other)
  Sender: INCYTE
  Company Number: EU-INCYTE CORPORATION-2024IN011747

PATIENT
  Age: 78 Year

DRUGS (2)
  1. TAFASITAMAB [Suspect]
     Active Substance: TAFASITAMAB
     Indication: Diffuse large B-cell lymphoma
     Dosage: UNK, AS PER THE APPROVED SMPC.DURATION OF MINJUVI/LENALIDOMIDE TREATMENT WAS 6 CYCLES
  2. LENALIDOMIDE [Suspect]
     Active Substance: LENALIDOMIDE
     Indication: Diffuse large B-cell lymphoma
     Dosage: UNK, DURATION OF MINJUVI/LENALIDOMIDE TREATMENT WAS 6 CYCLES
     Route: 065

REACTIONS (4)
  - Lower respiratory tract infection [Fatal]
  - Diffuse large B-cell lymphoma [Unknown]
  - Therapy partial responder [Unknown]
  - Disease progression [Unknown]
